FAERS Safety Report 4485291-3 (Version None)
Quarter: 2004Q4

REPORT INFORMATION
  Report Type: 
  Country: None (occurrence: None)
  Receive Date: 20041022
  Receipt Date: 20041022
  Transmission Date: 20050328
  Serious: Yes (Hospitalization)
  Sender: FDA-Public Use
  Company Number: None

PATIENT
  Age: 47 Year
  Sex: Female

DRUGS (5)
  1. GLIPIZIDE [Suspect]
     Indication: DIABETES MELLITUS
     Dosage: 5 MG   QAM   ORAL
     Route: 048
  2. TRAMADOL -ULTRAM- [Concomitant]
  3. QUINAPRIL/HYDROCHLOROTHIAZIDE -ACCURETIC- [Concomitant]
  4. FERROUS SULFATE TAB [Concomitant]
  5. PREVACID [Concomitant]

REACTIONS (4)
  - BLOOD GLUCOSE DECREASED [None]
  - CONFUSIONAL STATE [None]
  - DIZZINESS [None]
  - HYPERHIDROSIS [None]
